FAERS Safety Report 8495539-6 (Version None)
Quarter: 2012Q3

REPORT INFORMATION
  Report Type: 
  Country: None (occurrence: None)
  Receive Date: 20120709
  Receipt Date: 20120627
  Transmission Date: 20120928
  Serious: Yes (Hospitalization)
  Sender: FDA-Public Use
  Company Number: DK-TEVA-324459ISR

PATIENT
  Sex: Female

DRUGS (8)
  1. ENBREL [Suspect]
     Indication: RHEUMATOID ARTHRITIS
     Dates: start: 20090428, end: 20090529
  2. METHOTREXATE [Suspect]
     Indication: RHEUMATOID ARTHRITIS
     Route: 048
     Dates: start: 19990917, end: 20051116
  3. TRAMADOL HCL [Concomitant]
     Route: 048
  4. ACETAMINOPHEN [Concomitant]
     Dosage: 4000 MILLIGRAM;
     Route: 048
  5. HUMIRA [Suspect]
     Indication: RHEUMATOID ARTHRITIS
     Dosage: HUMIRA: FIELD B.4.K.6: ON A PAUSE FROM 04APR2004 TO 23OCT2004.
     Dates: start: 20030616, end: 20061212
  6. IMURAN [Suspect]
     Indication: RHEUMATOID ARTHRITIS
     Dates: start: 20061212, end: 20090511
  7. PREDNISOLONE [Concomitant]
     Route: 048
     Dates: start: 19990927, end: 20090428
  8. TRAMADOL HCL [Concomitant]

REACTIONS (1)
  - OVARIAN EPITHELIAL CANCER [None]
